FAERS Safety Report 19079489 (Version 1)
Quarter: 2021Q1

REPORT INFORMATION
  Report Type: Spontaneous
  Country: US (occurrence: US)
  Receive Date: 20210331
  Receipt Date: 20210331
  Transmission Date: 20210420
  Serious: Yes (Other)
  Sender: FDA-Public Use
  Company Number: US-ASTRAZENECA-2021A220146

PATIENT
  Age: 71 Year
  Sex: Male

DRUGS (4)
  1. TAGRISSO [Suspect]
     Active Substance: OSIMERTINIB
     Indication: NON-SMALL CELL LUNG CANCER
     Route: 048
  2. TAGRISSO [Suspect]
     Active Substance: OSIMERTINIB
     Indication: ADENOCARCINOMA
     Route: 048
  3. TAGRISSO [Suspect]
     Active Substance: OSIMERTINIB
     Indication: ADENOCARCINOMA
     Route: 048
     Dates: start: 2018
  4. TAGRISSO [Suspect]
     Active Substance: OSIMERTINIB
     Indication: NON-SMALL CELL LUNG CANCER
     Route: 048
     Dates: start: 2018

REACTIONS (5)
  - Eye swelling [Not Recovered/Not Resolved]
  - Keratitis [Unknown]
  - Eye pruritus [Not Recovered/Not Resolved]
  - Intentional product misuse [Unknown]
  - Ocular hyperaemia [Not Recovered/Not Resolved]
